FAERS Safety Report 9590924 (Version 1)
Quarter: 2013Q4

REPORT INFORMATION
  Report Type: Spontaneous
  Country: US (occurrence: US)
  Receive Date: 20131003
  Receipt Date: 20131003
  Transmission Date: 20140711
  Serious: No
  Sender: FDA-Public Use
  Company Number: US-AMGEN-USASP2012079712

PATIENT
  Sex: Male

DRUGS (5)
  1. ENBREL [Suspect]
     Indication: PRODUCT USED FOR UNKNOWN INDICATION
     Dosage: 50 MG, QWK
     Route: 058
  2. TYLENOL                            /00020001/ [Concomitant]
     Dosage: 325 MG, UNK
  3. FISH OIL [Concomitant]
     Dosage: UNK
  4. MULTIVITAMIN                       /00097801/ [Concomitant]
     Dosage: UNK
  5. MELOXICAM [Concomitant]
     Dosage: 7.5/5ML, UNK

REACTIONS (2)
  - Hepatic enzyme increased [Unknown]
  - Injection site reaction [Unknown]
